FAERS Safety Report 17849802 (Version 4)
Quarter: 2020Q3

REPORT INFORMATION
  Report Type: Spontaneous
  Country: US (occurrence: US)
  Receive Date: 20200602
  Receipt Date: 20200824
  Transmission Date: 20201103
  Serious: No
  Sender: FDA-Public Use
  Company Number: US-PFIZER INC-2020214834

PATIENT
  Age: 61 Year
  Sex: Female
  Weight: 58.51 kg

DRUGS (1)
  1. LYRICA [Suspect]
     Active Substance: PREGABALIN
     Indication: FIBROMYALGIA
     Dosage: UNK

REACTIONS (5)
  - Pain [Unknown]
  - Muscle spasms [Unknown]
  - Malaise [Unknown]
  - Withdrawal syndrome [Unknown]
  - Gait inability [Unknown]
